FAERS Safety Report 14123404 (Version 1)
Quarter: 2017Q4

REPORT INFORMATION
  Report Type: Spontaneous
  Country: US (occurrence: None)
  Receive Date: 20171025
  Receipt Date: 20171025
  Transmission Date: 20180321
  Serious: Yes (Hospitalization)
  Sender: FDA-Public Use
  Company Number: None

PATIENT
  Age: 69 Year
  Sex: Male

DRUGS (1)
  1. SPRYCEL [Suspect]
     Active Substance: DASATINIB
     Indication: CHRONIC MYELOID LEUKAEMIA
     Dosage: 2 TABLETS DAILY ORAL
     Route: 048
     Dates: start: 20070207

REACTIONS (2)
  - Respiratory disorder [None]
  - Therapy cessation [None]

NARRATIVE: CASE EVENT DATE: 201709
